FAERS Safety Report 6357182-4 (Version None)
Quarter: 2009Q3

REPORT INFORMATION
  Report Type: 
  Country: None (occurrence: None)
  Receive Date: 20090911
  Receipt Date: 20090901
  Transmission Date: 20100115
  Serious: Yes (Hospitalization)
  Sender: FDA-Public Use
  Company Number: 230015J09USA

PATIENT
  Age: 48 Year
  Sex: Male

DRUGS (10)
  1. REBIF [Suspect]
     Indication: OFF LABEL USE
     Dosage: 44 MCG, 3 IN 1 WEEKS, SUBCUTANEOUS
     Route: 058
     Dates: start: 20050418
  2. LIPITOR [Concomitant]
  3. METFORMIN HCL [Concomitant]
  4. LYRICA [Concomitant]
  5. CYMBALTA [Concomitant]
  6. RITALIN [Concomitant]
  7. CLONAZEPAM [Concomitant]
  8. BACLOFEN [Concomitant]
  9. LOW DOSE ASPIRIN (ACETYLSALICYLIC ACID) [Concomitant]
  10. VICODIN [Concomitant]

REACTIONS (2)
  - OFF LABEL USE [None]
  - PROSTATOMEGALY [None]
